FAERS Safety Report 21063455 (Version 1)
Quarter: 2022Q3

REPORT INFORMATION
  Report Type: Spontaneous
  Country: NO (occurrence: NO)
  Receive Date: 20220711
  Receipt Date: 20220711
  Transmission Date: 20221027
  Serious: Yes (Disabling, Other)
  Sender: FDA-Public Use
  Company Number: NO-NOVARTISPH-NVSC2022NO156129

PATIENT
  Age: 53 Year
  Sex: Female

DRUGS (2)
  1. ZOMETA [Suspect]
     Active Substance: ZOLEDRONIC ACID
     Indication: Fracture
     Dosage: UNK, (THE PLAN WAS TREATMENT EVERY THIRD MONTH, BUT IT ENDED UP WITH TREATMENT)
     Route: 042
     Dates: start: 20201222, end: 2021
  2. TRAN [Concomitant]
     Indication: Product used for unknown indication
     Dosage: UNK
     Route: 065

REACTIONS (5)
  - Neoplasm [Unknown]
  - Necrosis [Unknown]
  - Swelling [Unknown]
  - Musculoskeletal discomfort [Unknown]
  - Constipation [Unknown]

NARRATIVE: CASE EVENT DATE: 20201222
